FAERS Safety Report 19699835 (Version 2)
Quarter: 2021Q3

REPORT INFORMATION
  Report Type: Spontaneous
  Country: US (occurrence: US)
  Receive Date: 20210813
  Receipt Date: 20210816
  Transmission Date: 20211014
  Serious: Yes (Other)
  Sender: FDA-Public Use
  Company Number: US-MALLINCKRODT PHARMACEUTICALS-T202103591

PATIENT
  Age: 30 Year
  Sex: Female

DRUGS (10)
  1. INOMAX [Suspect]
     Active Substance: NITRIC OXIDE
     Indication: COVID-19 PNEUMONIA
  2. REMDESIVIR. [Suspect]
     Active Substance: REMDESIVIR
     Indication: COVID-19 PNEUMONIA
     Dosage: UNK
     Route: 065
  3. ENOXAPARIN [Suspect]
     Active Substance: ENOXAPARIN
     Indication: COVID-19 PNEUMONIA
     Dosage: 1 MILLIGRAM/KILOGRAM
     Route: 065
  4. NOREPINEPHRINE. [Suspect]
     Active Substance: NOREPINEPHRINE
     Indication: COVID-19 PNEUMONIA
     Dosage: UNK
     Route: 065
  5. EPOPROSTENOL. [Concomitant]
     Active Substance: EPOPROSTENOL
     Dosage: INHALED
     Route: 055
  6. DEXAMETHASONE. [Suspect]
     Active Substance: DEXAMETHASONE
     Indication: COVID-19 PNEUMONIA
     Dosage: UNK
     Route: 065
  7. NOREPINEPHRINE. [Suspect]
     Active Substance: NOREPINEPHRINE
     Indication: ACUTE RESPIRATORY DISTRESS SYNDROME
  8. INOMAX [Suspect]
     Active Substance: NITRIC OXIDE
     Indication: ACUTE RESPIRATORY DISTRESS SYNDROME
     Dosage: 20 PARTS PER MILLION
     Route: 055
  9. CISATRACURIUM. [Suspect]
     Active Substance: CISATRACURIUM
     Indication: ACUTE RESPIRATORY DISTRESS SYNDROME
     Dosage: UNK
     Route: 065
  10. CISATRACURIUM. [Suspect]
     Active Substance: CISATRACURIUM
     Indication: COVID-19 PNEUMONIA

REACTIONS (4)
  - COVID-19 [Unknown]
  - Exposure during pregnancy [Unknown]
  - Product use issue [Unknown]
  - Product use in unapproved indication [Unknown]
